FAERS Safety Report 9878008 (Version 2)
Quarter: 2014Q1

REPORT INFORMATION
  Report Type: Spontaneous
  Country: US (occurrence: US)
  Receive Date: 20140206
  Receipt Date: 20140206
  Transmission Date: 20141002
  Serious: Yes (Death, Hospitalization)
  Sender: FDA-Public Use
  Company Number: US-BAXTER-2014BAX003898

PATIENT
  Sex: Male

DRUGS (2)
  1. DIANEAL LOW CALCIUM [Suspect]
     Indication: PERITONEAL DIALYSIS
     Route: 033
     Dates: start: 2006, end: 201101
  2. 0.9 NORMAL SALINE [Suspect]
     Indication: HAEMODIALYSIS
     Dates: start: 201101

REACTIONS (2)
  - Myocardial infarction [Fatal]
  - Cardiac failure [Unknown]
